FAERS Safety Report 8331564-3 (Version None)
Quarter: 2012Q2

REPORT INFORMATION
  Report Type: 
  Country: None (occurrence: None)
  Receive Date: 20120502
  Receipt Date: 20120430
  Transmission Date: 20120825
  Serious: No
  Sender: FDA-Public Use
  Company Number: US-PFIZER INC-2012106523

PATIENT
  Age: 84 Year
  Sex: Male
  Weight: 90.7 kg

DRUGS (6)
  1. LYRICA [Suspect]
     Indication: PAIN
     Dosage: 150 MG, DAILY
     Route: 048
     Dates: start: 20120418
  2. NEXIUM [Concomitant]
     Dosage: UNK
  3. PREDNISONE [Concomitant]
     Indication: INFLAMMATION
     Dosage: 5 MG, UNK
  4. TERAZOSIN [Concomitant]
     Indication: SLEEP DISORDER
     Dosage: UNK
  5. AVALIDE [Concomitant]
     Indication: HYPERTENSION
     Dosage: ^6.25^ MG DAILY
  6. PREDNISONE [Concomitant]
     Indication: GLUCOCORTICOIDS DECREASED

REACTIONS (3)
  - BALANCE DISORDER [None]
  - WEIGHT INCREASED [None]
  - SOMNOLENCE [None]
